FAERS Safety Report 18225640 (Version 1)
Quarter: 2020Q3

REPORT INFORMATION
  Report Type: Spontaneous
  Country: US (occurrence: US)
  Receive Date: 20200903
  Receipt Date: 20200903
  Transmission Date: 20201103
  Serious: Yes (Other)
  Sender: FDA-Public Use
  Company Number: US-BIOGEN-2019BI00754477

PATIENT
  Sex: Female

DRUGS (1)
  1. TECFIDERA [Suspect]
     Active Substance: DIMETHYL FUMARATE
     Indication: MULTIPLE SCLEROSIS
     Route: 048
     Dates: start: 20130531

REACTIONS (8)
  - Deafness unilateral [Unknown]
  - Gait disturbance [Unknown]
  - Cognitive disorder [Unknown]
  - Urinary incontinence [Unknown]
  - Hot flush [Unknown]
  - Pneumonia [Unknown]
  - Memory impairment [Unknown]
  - Anal incontinence [Unknown]
